FAERS Safety Report 5560907-9 (Version None)
Quarter: 2007Q4

REPORT INFORMATION
  Report Type: 
  Country: None (occurrence: None)
  Receive Date: 20071215
  Receipt Date: 20071128
  Transmission Date: 20080405
  Serious: No
  Sender: FDA-Public Use
  Company Number: US-ABBOTT-07P-163-0426742-00

PATIENT
  Sex: Female
  Weight: 88.076 kg

DRUGS (3)
  1. HUMIRA [Suspect]
     Indication: RHEUMATOID ARTHRITIS
     Route: 058
     Dates: start: 20070911
  2. VICODIN [Suspect]
     Indication: ARTHRALGIA
     Route: 048
     Dates: start: 20070906
  3. CHANTIX [Concomitant]
     Indication: EX-SMOKER
     Route: 048
     Dates: start: 20070906

REACTIONS (1)
  - WEIGHT INCREASED [None]
